FAERS Safety Report 5711195-1 (Version None)
Quarter: 2008Q2

REPORT INFORMATION
  Report Type: 
  Country: None (occurrence: None)
  Receive Date: 20080417
  Receipt Date: 20080417
  Transmission Date: 20081010
  Serious: Yes (Hospitalization)
  Sender: FDA-Public Use
  Company Number: None

PATIENT
  Age: 66 Year
  Sex: Male
  Weight: 144.7 kg

DRUGS (6)
  1. ZESTORETIC [Suspect]
  2. ATENOLOL [Concomitant]
  3. LORAZEPAM [Concomitant]
  4. FLUOCINONIDE [Concomitant]
  5. OMEPRAZOLE [Concomitant]
  6. CIMETIDINE [Concomitant]

REACTIONS (1)
  - RASH [None]
